FAERS Safety Report 5305358-7 (Version None)
Quarter: 2007Q2

REPORT INFORMATION
  Report Type: 
  Country: None (occurrence: None)
  Receive Date: 20070424
  Receipt Date: 20070411
  Transmission Date: 20071010
  Serious: Yes (Hospitalization)
  Sender: FDA-Public Use
  Company Number: PHEH2007US04289

PATIENT
  Age: 84 Year
  Sex: Female

DRUGS (1)
  1. ZELNORM [Suspect]
     Indication: CONSTIPATION
     Dosage: 6 MG, BID
     Route: 048
     Dates: start: 20070301, end: 20070403

REACTIONS (5)
  - ABDOMINAL DISTENSION [None]
  - CARDIAC PACEMAKER INSERTION [None]
  - CORONARY ARTERY OCCLUSION [None]
  - DYSPNOEA [None]
  - OEDEMA PERIPHERAL [None]
